FAERS Safety Report 7090349-9 (Version None)
Quarter: 2010Q4

REPORT INFORMATION
  Report Type: 
  Country: None (occurrence: None)
  Receive Date: 20101109
  Receipt Date: 20101104
  Transmission Date: 20110411
  Serious: Yes (Death)
  Sender: FDA-Public Use
  Company Number: JP-ASTRAZENECA-2010SE49483

PATIENT
  Age: 51 Year
  Sex: Male
  Weight: 56 kg

DRUGS (5)
  1. CASODEX [Suspect]
     Indication: PROSTATE CANCER
     Route: 048
     Dates: start: 20100426, end: 20100508
  2. CASODEX [Suspect]
     Route: 048
     Dates: start: 20100820, end: 20100906
  3. LEUPLIN [Concomitant]
     Indication: PROSTATE CANCER
     Route: 058
     Dates: start: 20100430, end: 20100625
  4. URSO 250 [Concomitant]
     Indication: HEPATIC ENZYME INCREASED
     Route: 048
     Dates: start: 20100426, end: 20100910
  5. ZOMETA [Concomitant]
     Indication: METASTASES TO BONE
     Route: 041
     Dates: start: 20100723

REACTIONS (1)
  - HEPATIC FUNCTION ABNORMAL [None]
